FAERS Safety Report 18141708 (Version 4)
Quarter: 2020Q4

REPORT INFORMATION
  Report Type: Report from Study
  Country: US (occurrence: US)
  Receive Date: 20200812
  Receipt Date: 20201111
  Transmission Date: 20210113
  Serious: Yes (Hospitalization)
  Sender: FDA-Public Use
  Company Number: US-EISAI MEDICAL RESEARCH-EC-2020-078730

PATIENT
  Age: 74 Year
  Sex: Male

DRUGS (2)
  1. LENVIMA [Suspect]
     Active Substance: LENVATINIB
     Indication: RENAL CANCER
     Dosage: UNKNOWN FREQUENCY
     Route: 048
     Dates: start: 202006, end: 202007
  2. LENVIMA [Suspect]
     Active Substance: LENVATINIB
     Dosage: UNKNOWN FREQUENCY
     Route: 048
     Dates: start: 20201023

REACTIONS (3)
  - Blood pressure increased [Not Recovered/Not Resolved]
  - Cerebrovascular accident [Unknown]
  - Pruritus [Unknown]

NARRATIVE: CASE EVENT DATE: 2020
